FAERS Safety Report 4393442-4 (Version None)
Quarter: 2004Q3

REPORT INFORMATION
  Report Type: 
  Country: None (occurrence: None)
  Receive Date: 20040707
  Receipt Date: 20040707
  Transmission Date: 20050211
  Serious: Yes (Other)
  Sender: FDA-Public Use
  Company Number: None

PATIENT
  Age: 57 Year
  Sex: Female

DRUGS (2)
  1. AMBIEN [Suspect]
     Indication: INSOMNIA
     Dosage: 10 MG HS PO
     Route: 048
     Dates: start: 20040612, end: 20040615
  2. WELLBUTRIN [Suspect]
     Dosage: 150 MG PO AM AND PM
     Route: 048
     Dates: start: 20040617

REACTIONS (5)
  - ASTHENIA [None]
  - INSOMNIA [None]
  - SEDATION [None]
  - SOMNOLENCE [None]
  - TREMOR [None]
